FAERS Safety Report 5304536-0 (Version None)
Quarter: 2007Q2

REPORT INFORMATION
  Report Type: 
  Country: None (occurrence: None)
  Receive Date: 20070423
  Receipt Date: 20070412
  Transmission Date: 20071010
  Serious: Yes (Death, Life-Threatening, Hospitalization)
  Sender: FDA-Public Use
  Company Number: HQWYE048419MAR07

PATIENT
  Sex: Female
  Weight: 36 kg

DRUGS (1)
  1. ENBREL [Suspect]
     Indication: RHEUMATOID ARTHRITIS
     Dosage: UNKNOWN
     Route: 058
     Dates: start: 20060908, end: 20070201

REACTIONS (7)
  - BRONCHOPULMONARY ASPERGILLOSIS [None]
  - GASTRIC ULCER [None]
  - INTESTINAL OBSTRUCTION [None]
  - LARGE INTESTINAL ULCER [None]
  - LUNG INFECTION PSEUDOMONAL [None]
  - PANCREATITIS ACUTE [None]
  - SHOCK [None]
